FAERS Safety Report 4716812-0 (Version None)
Quarter: 2005Q3

REPORT INFORMATION
  Report Type: 
  Country: None (occurrence: None)
  Receive Date: 20050719
  Receipt Date: 20050615
  Transmission Date: 20060218
  Serious: Yes (Other)
  Sender: FDA-Public Use
  Company Number: 2005AC00902

PATIENT
  Age: 35 Year
  Sex: Female
  Weight: 60 kg

DRUGS (8)
  1. SEROQUEL [Suspect]
     Indication: PSYCHOTIC DISORDER
     Route: 048
     Dates: start: 20050513, end: 20050615
  2. PAROXETINE HCL [Concomitant]
  3. PRIADEL [Concomitant]
  4. ETYNILESTRADIOL [Concomitant]
  5. DIAZEPAM [Concomitant]
  6. DEPAKINES [Concomitant]
  7. FLURAZEPAM [Concomitant]
  8. EUTHYROX [Concomitant]

REACTIONS (2)
  - PARAESTHESIA ORAL [None]
  - SKIN HYPERPIGMENTATION [None]
